FAERS Safety Report 15432605 (Version 2)
Quarter: 2018Q4

REPORT INFORMATION
  Report Type: Spontaneous
  Country: BR (occurrence: BR)
  Receive Date: 20180927
  Receipt Date: 20181024
  Transmission Date: 20190204
  Serious: Yes (Other)
  Sender: FDA-Public Use
  Company Number: BR-B.I. PHARMACEUTICALS,INC./RIDGEFIELD-2018-BI-047908

PATIENT
  Sex: Female

DRUGS (1)
  1. GILOTRIF [Suspect]
     Active Substance: AFATINIB
     Indication: EGFR GENE MUTATION
     Route: 065

REACTIONS (2)
  - Malignant neoplasm progression [Unknown]
  - Pneumonitis [Recovered/Resolved]
